FAERS Safety Report 5001668-1 (Version None)
Quarter: 2006Q2

REPORT INFORMATION
  Report Type: 
  Country: None (occurrence: None)
  Receive Date: 20060515
  Receipt Date: 20060223
  Transmission Date: 20061013
  Serious: Yes (Hospitalization, Other)
  Sender: FDA-Public Use
  Company Number: FR-AVENTIS-200610791FR

PATIENT
  Age: 29 Year
  Sex: Female

DRUGS (6)
  1. ARAVA [Suspect]
     Indication: RHEUMATOID ARTHRITIS
     Route: 048
     Dates: start: 20050401, end: 20060223
  2. ARAVA [Suspect]
     Route: 048
     Dates: start: 20060101
  3. CORTANCYL [Suspect]
     Indication: RHEUMATOID ARTHRITIS
     Route: 048
  4. DI-ANTALVIC [Suspect]
     Indication: RHEUMATOID ARTHRITIS
     Route: 048
     Dates: end: 20060223
  5. OGAST [Concomitant]
  6. CALCIUM WITH VITAMIN D [Concomitant]
     Route: 048

REACTIONS (4)
  - ABORTION INDUCED [None]
  - DRUG EXPOSURE DURING PREGNANCY [None]
  - NO ADVERSE DRUG EFFECT [None]
  - PREGNANCY [None]
